FAERS Safety Report 4777194-1 (Version None)
Quarter: 2005Q3

REPORT INFORMATION
  Report Type: 
  Country: None (occurrence: None)
  Receive Date: 20050923
  Receipt Date: 20050603
  Transmission Date: 20060218
  Serious: Yes (Hospitalization, Other)
  Sender: FDA-Public Use
  Company Number: US-MERCK-0506USA00850

PATIENT
  Age: 61 Year
  Sex: Male
  Weight: 113 kg

DRUGS (30)
  1. METRONIDAZOLE [Concomitant]
     Route: 065
  2. TETRACYCLINE [Concomitant]
     Route: 065
  3. AXERT [Concomitant]
     Route: 065
  4. VIOXX [Suspect]
     Indication: RHEUMATOID ARTHRITIS
     Route: 048
     Dates: start: 19990617, end: 20040930
  5. VIOXX [Suspect]
     Indication: OSTEOARTHRITIS
     Route: 048
     Dates: start: 19990617, end: 20040930
  6. METHOTREXATE [Concomitant]
     Indication: RHEUMATOID ARTHRITIS
     Route: 065
     Dates: start: 20000110, end: 20020317
  7. NEURONTIN [Concomitant]
     Indication: COMPLEX REGIONAL PAIN SYNDROME
     Route: 065
     Dates: start: 20000131, end: 20031206
  8. NEURONTIN [Concomitant]
     Indication: RHEUMATOID ARTHRITIS
     Route: 065
     Dates: start: 20000131, end: 20031206
  9. ACETAMINOPHEN [Concomitant]
     Indication: COMPLEX REGIONAL PAIN SYNDROME
     Route: 065
     Dates: start: 20000101, end: 20031201
  10. ACETAMINOPHEN [Concomitant]
     Indication: ANALGESIC EFFECT
     Route: 065
     Dates: start: 20000101, end: 20031201
  11. PREDNISONE [Concomitant]
     Indication: COMPLEX REGIONAL PAIN SYNDROME
     Route: 065
     Dates: start: 20010413, end: 20031112
  12. PREDNISONE [Concomitant]
     Indication: RHEUMATOID ARTHRITIS
     Route: 065
     Dates: start: 20010413, end: 20031112
  13. MOBIC [Concomitant]
     Route: 065
     Dates: start: 20011004, end: 20011013
  14. GLUCOPHAGE [Concomitant]
     Indication: DIABETES MELLITUS
     Route: 065
  15. PRILOSEC [Concomitant]
     Indication: GASTROOESOPHAGEAL REFLUX DISEASE
     Route: 065
  16. PREVACID [Concomitant]
     Indication: GASTROOESOPHAGEAL REFLUX DISEASE
     Route: 065
  17. ACCUPRIL [Concomitant]
     Indication: HYPERTENSION
     Route: 065
     Dates: start: 20000101
  18. DILTIAZEM MALATE [Concomitant]
     Indication: HYPERTENSION
     Route: 065
  19. LISINOPRIL [Concomitant]
     Indication: HYPERTENSION
     Route: 065
  20. AMITRIPTYLINE HYDROCHLORIDE [Concomitant]
     Indication: GENERALISED ANXIETY DISORDER
     Route: 065
     Dates: start: 20010601, end: 20030701
  21. AMITRIPTYLINE HYDROCHLORIDE [Concomitant]
     Indication: PANIC DISORDER
     Route: 065
     Dates: start: 20010601, end: 20030701
  22. ZOCOR [Concomitant]
     Indication: BLOOD CHOLESTEROL INCREASED
     Route: 048
     Dates: start: 20000101
  23. GEMFIBROZIL [Concomitant]
     Indication: BLOOD CHOLESTEROL INCREASED
     Route: 065
  24. NIASPAN [Concomitant]
     Indication: BLOOD CHOLESTEROL INCREASED
     Route: 065
  25. HUMULIN [Concomitant]
     Indication: DIABETES MELLITUS
     Route: 065
  26. ALBUTEROL [Concomitant]
     Route: 065
  27. TUSSIONEX (CHLORPHENIRAMINE POLISTIREX (+) HYDROCODONE POLISTIREX) [Concomitant]
     Route: 065
  28. AMBIEN [Concomitant]
     Route: 065
  29. CEPHALEXIN [Concomitant]
     Route: 065
  30. LEVAQUIN [Concomitant]
     Route: 065

REACTIONS (16)
  - ANGINA PECTORIS [None]
  - BURSITIS [None]
  - CORONARY ARTERY ATHEROSCLEROSIS [None]
  - CUBITAL TUNNEL SYNDROME [None]
  - DEPRESSION [None]
  - DIZZINESS [None]
  - GENERALISED ANXIETY DISORDER [None]
  - HELICOBACTER PYLORI IDENTIFICATION TEST POSITIVE [None]
  - HYPOAESTHESIA [None]
  - MYOCARDIAL INFARCTION [None]
  - OEDEMA PERIPHERAL [None]
  - PANIC DISORDER [None]
  - PLEURITIC PAIN [None]
  - POSTOPERATIVE INFECTION [None]
  - RAYNAUD'S PHENOMENON [None]
  - UMBILICAL HERNIA [None]
